FAERS Safety Report 18311194 (Version 1)
Quarter: 2020Q3

REPORT INFORMATION
  Report Type: Spontaneous
  Country: SE (occurrence: SE)
  Receive Date: 20200925
  Receipt Date: 20200925
  Transmission Date: 20201103
  Serious: Yes (Other)
  Sender: FDA-Public Use
  Company Number: SE-SA-2020SA261845

PATIENT

DRUGS (1)
  1. DUPIXENT [Suspect]
     Active Substance: DUPILUMAB
     Dosage: 200 MG

REACTIONS (5)
  - Gastrointestinal disorder [Unknown]
  - Arthralgia [Unknown]
  - Off label use [Unknown]
  - Autoimmune disorder [Unknown]
  - Opportunistic infection [Unknown]
